FAERS Safety Report 18825314 (Version 2)
Quarter: 2021Q1

REPORT INFORMATION
  Report Type: Spontaneous
  Country: DE (occurrence: DE)
  Receive Date: 20210202
  Receipt Date: 20210205
  Transmission Date: 20210419
  Serious: Yes (Other)
  Sender: FDA-Public Use
  Company Number: DE-BAYER-2021-021085

PATIENT
  Age: 8 Year
  Sex: Male
  Weight: 31.5 kg

DRUGS (1)
  1. KOVALTRY [Suspect]
     Active Substance: ANTIHEMOPHILIC FACTOR, HUMAN RECOMBINANT
     Indication: FACTOR VIII DEFICIENCY
     Dosage: 1000 U, 2 ? 3 TIMES PER WEEK
     Route: 042
     Dates: start: 2013

REACTIONS (4)
  - Drug half-life reduced [Not Recovered/Not Resolved]
  - Drug ineffective [None]
  - Haemorrhage [None]
  - Anti factor VIII antibody positive [Not Recovered/Not Resolved]

NARRATIVE: CASE EVENT DATE: 20210106
